FAERS Safety Report 10433423 (Version 1)
Quarter: 2014Q3

REPORT INFORMATION
  Report Type: Spontaneous
  Country: JP (occurrence: JP)
  Receive Date: 20140905
  Receipt Date: 20140905
  Transmission Date: 20150326
  Serious: Yes (Other)
  Sender: FDA-Public Use
  Company Number: PHHY2013JP162210

PATIENT
  Age: 82 Year
  Sex: Male

DRUGS (3)
  1. EXJADE [Suspect]
     Active Substance: DEFERASIROX
     Indication: MYELODYSPLASTIC SYNDROME
     Dosage: 625 MG, DAILY
     Dates: start: 200908
  2. EXJADE [Suspect]
     Active Substance: DEFERASIROX
     Dosage: 500 MG, PER DAY
  3. EXJADE [Suspect]
     Active Substance: DEFERASIROX
     Dosage: 1000 MG, PER DAY

REACTIONS (2)
  - Lung neoplasm malignant [Unknown]
  - Renal impairment [Unknown]
